FAERS Safety Report 23966270 (Version 2)
Quarter: 2024Q2

REPORT INFORMATION
  Report Type: Spontaneous
  Country: GB (occurrence: GB)
  Receive Date: 20240612
  Receipt Date: 20240613
  Transmission Date: 20240716
  Serious: Yes (Hospitalization, Other)
  Sender: FDA-Public Use
  Company Number: GB-Amarin Pharma  Inc-2024AMR000262

PATIENT

DRUGS (1)
  1. ICOSAPENT ETHYL [Suspect]
     Active Substance: ICOSAPENT ETHYL
     Indication: Product used for unknown indication
     Dosage: UNKNOWN

REACTIONS (3)
  - Endotracheal intubation [Unknown]
  - Gastrointestinal tube insertion [Unknown]
  - Therapy interrupted [Unknown]
